FAERS Safety Report 4343253-0 (Version None)
Quarter: 2004Q1

REPORT INFORMATION
  Report Type: 
  Country: None (occurrence: None)
  Receive Date: 20040325
  Receipt Date: 20031121
  Transmission Date: 20041129
  Serious: No
  Sender: FDA-Public Use
  Company Number: USA031153220

PATIENT
  Age: 64 Year
  Sex: Female

DRUGS (4)
  1. FORTEO [Suspect]
     Indication: OSTEOPOROSIS
     Dosage: 20 UG/DAY
     Dates: start: 20030701
  2. EVISTA [Suspect]
     Indication: OSTEOPOROSIS
     Dates: start: 20020201, end: 20030201
  3. VIACTIV /USA/ (CALCIUM) [Concomitant]
  4. BAYER PLUS [Concomitant]

REACTIONS (5)
  - ARTHROPATHY [None]
  - ASTHENIA [None]
  - BONE PAIN [None]
  - DRUG INEFFECTIVE [None]
  - INJECTION SITE BURNING [None]
